FAERS Safety Report 25411569 (Version 2)
Quarter: 2025Q2

REPORT INFORMATION
  Report Type: Spontaneous
  Country: DE (occurrence: DE)
  Receive Date: 20250609
  Receipt Date: 20250617
  Transmission Date: 20250716
  Serious: Yes (Other)
  Sender: ALKEM
  Company Number: US-ALKEM LABORATORIES LIMITED-US-ALKEM-2025-05864

PATIENT
  Age: 73 Year
  Sex: Male

DRUGS (3)
  1. NIMODIPINE [Suspect]
     Active Substance: NIMODIPINE
     Indication: Subarachnoid haemorrhage
     Route: 048
  2. NIMODIPINE [Suspect]
     Active Substance: NIMODIPINE
     Route: 048
  3. AMLODIPINE [Concomitant]
     Active Substance: AMLODIPINE BESYLATE
     Indication: Subarachnoid haemorrhage
     Route: 065

REACTIONS (1)
  - Vasoplegia syndrome [Recovering/Resolving]
